FAERS Safety Report 25260143 (Version 1)
Quarter: 2025Q2

REPORT INFORMATION
  Report Type: Spontaneous
  Country: US (occurrence: None)
  Receive Date: 20250501
  Receipt Date: 20250501
  Transmission Date: 20250716
  Serious: Yes (Hospitalization)
  Sender: FDA-CTU
  Company Number: None

PATIENT
  Age: 73 Year
  Sex: Male
  Weight: 29 kg

DRUGS (1)
  1. HYDROCHLOROTHIAZIDE [Suspect]
     Active Substance: HYDROCHLOROTHIAZIDE
     Indication: Hypertension
     Route: 048

REACTIONS (8)
  - Hyponatraemia [None]
  - Syncope [None]
  - Asthenia [None]
  - Dizziness [None]
  - Blood sodium decreased [None]
  - Blood pressure increased [None]
  - Treatment noncompliance [None]
  - Therapy cessation [None]

NARRATIVE: CASE EVENT DATE: 20241130
